FAERS Safety Report 8569981-9 (Version None)
Quarter: 2012Q3

REPORT INFORMATION
  Report Type: 
  Country: None (occurrence: None)
  Receive Date: 20120803
  Receipt Date: 20120523
  Transmission Date: 20120928
  Serious: No
  Sender: FDA-Public Use
  Company Number: US-ABBOTT-12P-163-0938655-00

PATIENT
  Sex: Male
  Weight: 88.53 kg

DRUGS (4)
  1. NIASPAN [Suspect]
     Indication: BLOOD TRIGLYCERIDES INCREASED
     Dosage: AT BEDTIME
     Dates: start: 20120509
  2. ADDERALL 5 [Concomitant]
     Indication: PRODUCT USED FOR UNKNOWN INDICATION
  3. FENOFIBRATE [Concomitant]
     Indication: PRODUCT USED FOR UNKNOWN INDICATION
  4. NIASPAN [Suspect]
     Indication: HIGH DENSITY LIPOPROTEIN DECREASED

REACTIONS (8)
  - VOMITING [None]
  - PAIN IN EXTREMITY [None]
  - DIARRHOEA [None]
  - FLUSHING [None]
  - SKIN DISCOLOURATION [None]
  - BURNING SENSATION [None]
  - NAUSEA [None]
  - ERYTHEMA [None]
